FAERS Safety Report 8844548 (Version 1)
Quarter: 2012Q4

REPORT INFORMATION
  Report Type: Spontaneous
  Country: US (occurrence: None)
  Receive Date: 20121016
  Receipt Date: 20121016
  Transmission Date: 20130627
  Serious: Yes (Hospitalization)
  Sender: FDA-Public Use
  Company Number: None

PATIENT
  Age: 52 Year
  Sex: Male
  Weight: 177 kg

DRUGS (4)
  1. COUMADIN [Suspect]
     Indication: AORTIC VALVE REPLACEMENT
     Dosage: 12 mg daily po
     Route: 048
  2. DOXYCYCLINE [Concomitant]
  3. LASIX [Concomitant]
  4. OXYCODONE/APAP [Concomitant]

REACTIONS (4)
  - Asthenia [None]
  - Gastritis [None]
  - International normalised ratio increased [None]
  - Haemoglobin decreased [None]
